FAERS Safety Report 8610930-2 (Version None)
Quarter: 2012Q3

REPORT INFORMATION
  Report Type: 
  Country: None (occurrence: None)
  Receive Date: 20120822
  Receipt Date: 20120809
  Transmission Date: 20120928
  Serious: Yes (Hospitalization)
  Sender: FDA-Public Use
  Company Number: DE-COVIDIEN/TYCO HEALTHCARE/MALLINCKRODT-T201203207

PATIENT
  Sex: Male
  Weight: 170 kg

DRUGS (5)
  1. EXALGO [Suspect]
     Dosage: 16 MG, UNK
     Route: 048
  2. EXALGO [Suspect]
     Dosage: 64 MG, UNK
     Route: 048
  3. EXALGO [Suspect]
     Dosage: 32 MG, UNK
     Route: 048
  4. EXALGO [Suspect]
     Dosage: 96 MG, QD
     Route: 048
     Dates: start: 20120101
  5. EXALGO [Suspect]
     Indication: PAIN MANAGEMENT
     Dosage: 8 MG, UNK
     Route: 048

REACTIONS (1)
  - DRUG LEVEL DECREASED [None]
